FAERS Safety Report 4767812-6 (Version None)
Quarter: 2005Q3

REPORT INFORMATION
  Report Type: 
  Country: None (occurrence: None)
  Receive Date: 20050912
  Receipt Date: 20050905
  Transmission Date: 20060218
  Serious: Yes (Hospitalization)
  Sender: FDA-Public Use
  Company Number: GBWYE883804AUG05

PATIENT
  Age: 52 Year
  Sex: Female

DRUGS (23)
  1. RAPAMUNE [Suspect]
     Dosage: 3 MG 1X PER 1 DAY ORAL
     Route: 048
     Dates: start: 20050610
  2. MYCOPHENOLATE MOFETIL (MYCOPHENOLATE MOFETIL, , 0) [Suspect]
     Dosage: 500 MG 2X PER 1 DAY ORAL
     Route: 048
     Dates: start: 20050710, end: 20050814
  3. PREDNISOLONE [Suspect]
     Dosage: SEE IMAGE
     Route: 048
     Dates: end: 20050820
  4. PREDNISOLONE [Suspect]
     Dosage: SEE IMAGE
     Route: 048
     Dates: start: 20050610
  5. ZENAPAX [Suspect]
     Dosage: 75 MG 2X PER 1 DAY INTRAVENOUS
     Route: 042
     Dates: start: 20050610, end: 20050624
  6. LANSOPRAZOLE [Concomitant]
  7. ATENOLOL [Concomitant]
  8. IRBESARTAN [Concomitant]
  9. IRBESARTAN [Concomitant]
  10. FRUSEMIDE (FRUSEMIDE) [Concomitant]
  11. DOXAZOSIN (DOXAZOSIN) [Concomitant]
  12. MINOXIDIL [Concomitant]
  13. MINOXIDIL [Concomitant]
  14. MINOXIDIL [Concomitant]
  15. ASPIRIN [Concomitant]
  16. ALFACALCIDOL (ALFACALCIDOL) [Concomitant]
  17. ATORVASTATIN CALCIUM [Concomitant]
  18. SODIUM BICARBONATE IN PLASTIC CONTAINER [Concomitant]
  19. SODIUM BICARBONATE IN PLASTIC CONTAINER [Concomitant]
  20. ARANESP [Concomitant]
  21. CORSODYL (CHLORHEXIDINE GLUCONATE) [Concomitant]
  22. FRAGMIN [Concomitant]
  23. TACROLIMUS (TACROLIMUS) [Concomitant]

REACTIONS (13)
  - BIOPSY KIDNEY ABNORMAL [None]
  - BLOOD CREATININE INCREASED [None]
  - CATHETER RELATED COMPLICATION [None]
  - HAEMODIALYSIS [None]
  - HYPERTENSION [None]
  - INFLAMMATION [None]
  - MALAISE [None]
  - PANCREATITIS [None]
  - PHARYNGOLARYNGEAL PAIN [None]
  - PRODUCTIVE COUGH [None]
  - PYREXIA [None]
  - RENAL FAILURE [None]
  - TRANSPLANT REJECTION [None]
